FAERS Safety Report 7751099-6 (Version None)
Quarter: 2011Q3

REPORT INFORMATION
  Report Type: 
  Country: None (occurrence: None)
  Receive Date: 20110912
  Receipt Date: 20110826
  Transmission Date: 20111222
  Serious: Yes (Other)
  Sender: FDA-Public Use
  Company Number: 2010MA000066

PATIENT
  Age: 71 Year
  Sex: Female
  Weight: 71.3055 kg

DRUGS (51)
  1. PRAVACHOL [Concomitant]
  2. KLONOPIN [Concomitant]
  3. VALTREX [Concomitant]
  4. LOVAZA [Concomitant]
  5. EVISTA [Concomitant]
  6. CELEXA [Concomitant]
  7. VICODIN [Concomitant]
  8. LORATADINE [Concomitant]
  9. PERCOCET [Concomitant]
  10. ZETIA [Concomitant]
  11. MACROBID [Concomitant]
  12. MAGIC MOUTHWASH [Concomitant]
  13. METOCLOPRAMIDE [Suspect]
     Indication: HIATUS HERNIA
     Dosage: 20 MG;BID;PO
     Route: 048
     Dates: start: 20000721, end: 20090420
  14. METOCLOPRAMIDE [Suspect]
     Indication: GASTROOESOPHAGEAL REFLUX DISEASE
     Dosage: 20 MG;BID;PO
     Route: 048
     Dates: start: 20000721, end: 20090420
  15. OXYCODONE/ACETAMINOPHEN [Concomitant]
  16. SINEMET [Concomitant]
  17. TRAZODONE HYDROCHLORIDE [Concomitant]
  18. CALCIUM CARBONATE [Concomitant]
  19. ALLEGRA [Concomitant]
  20. PEPCID [Concomitant]
  21. STEROID [Concomitant]
  22. ARIMIDEX [Concomitant]
  23. FLUOXETINE [Concomitant]
  24. LIMBREL [Concomitant]
  25. FISH OIL [Concomitant]
  26. CARBIDOPA AND LEVODOPA [Concomitant]
  27. VITAMIN B-12 [Concomitant]
  28. XANAX [Concomitant]
  29. ZANTAC [Concomitant]
  30. FOLTX [Concomitant]
  31. CENTRUM [Concomitant]
  32. PRILOSEC [Concomitant]
  33. ADVIL LIQUI-GELS [Concomitant]
  34. CYCLOPHOSPHAMIDE [Concomitant]
  35. ACTONEL [Concomitant]
  36. MYCOSTATIN [Concomitant]
  37. PREVACID [Concomitant]
  38. VICODIN [Concomitant]
  39. ACIPHEX [Concomitant]
  40. OXYCONTIN [Concomitant]
  41. METAMUCIL-2 [Concomitant]
  42. NYSTATIN [Concomitant]
  43. CRESTOR [Concomitant]
  44. ADIPEX [Concomitant]
  45. PLAQUENIL [Concomitant]
  46. LEVAQUIN [Concomitant]
  47. GLUCOSAMINE CHONDROITIN [Concomitant]
  48. PREDNISONE [Concomitant]
  49. TRAMADOL HCL [Concomitant]
  50. CIPROFLOXACIN [Concomitant]
  51. NEURONTIN [Concomitant]

REACTIONS (61)
  - ORAL HERPES [None]
  - EXCESSIVE EYE BLINKING [None]
  - OSTEOARTHRITIS [None]
  - HYPERLIPIDAEMIA [None]
  - TENDERNESS [None]
  - HAEMATURIA [None]
  - FALL [None]
  - ATAXIA [None]
  - DEPRESSION [None]
  - TRICUSPID VALVE INCOMPETENCE [None]
  - MULTIPLE INJURIES [None]
  - TREMOR [None]
  - STOMATITIS [None]
  - GLOSSODYNIA [None]
  - MENISCUS LESION [None]
  - CONSTIPATION [None]
  - LEFT VENTRICULAR HYPERTROPHY [None]
  - JOINT EFFUSION [None]
  - GAIT DISTURBANCE [None]
  - FATIGUE [None]
  - SEASONAL ALLERGY [None]
  - MOOD SWINGS [None]
  - PERSONALITY CHANGE [None]
  - BACK PAIN [None]
  - DYSPHONIA [None]
  - WHEEZING [None]
  - OEDEMA PERIPHERAL [None]
  - STRESS [None]
  - BLOOD CHOLESTEROL INCREASED [None]
  - EXTRAPYRAMIDAL DISORDER [None]
  - LACUNAR INFARCTION [None]
  - TARDIVE DYSKINESIA [None]
  - INSOMNIA [None]
  - ARTHRITIS [None]
  - INGROWING NAIL [None]
  - SYNOVIAL CYST [None]
  - BLOOD TRIGLYCERIDES INCREASED [None]
  - EMOTIONAL DISORDER [None]
  - CHILLS [None]
  - RHINITIS ALLERGIC [None]
  - KNEE ARTHROPLASTY [None]
  - ANXIETY [None]
  - DIASTOLIC DYSFUNCTION [None]
  - BREAST CANCER [None]
  - ECONOMIC PROBLEM [None]
  - BRADYKINESIA [None]
  - BURNING MOUTH SYNDROME [None]
  - POSTURAL REFLEX IMPAIRMENT [None]
  - DYSPEPSIA [None]
  - COLONIC POLYP [None]
  - ARTHRALGIA [None]
  - NOCTURIA [None]
  - DISTURBANCE IN ATTENTION [None]
  - DIVERTICULUM [None]
  - CULTURE URINE POSITIVE [None]
  - PARKINSON'S DISEASE [None]
  - MUSCLE SPASMS [None]
  - JOINT STIFFNESS [None]
  - PURULENCE [None]
  - MASKED FACIES [None]
  - SPINAL OSTEOARTHRITIS [None]
